FAERS Safety Report 6688555-8 (Version None)
Quarter: 2010Q2

REPORT INFORMATION
  Report Type: 
  Country: None (occurrence: None)
  Receive Date: 20100420
  Receipt Date: 20100409
  Transmission Date: 20101027
  Serious: Yes (Disabling)
  Sender: FDA-Public Use
  Company Number: US-MERCK-1003USA04024

PATIENT
  Age: 38 Year
  Sex: Male
  Weight: 80 kg

DRUGS (3)
  1. SINGULAIR [Suspect]
     Route: 048
  2. FLONASE [Concomitant]
     Route: 065
  3. PROVENTIL [Concomitant]
     Route: 055

REACTIONS (3)
  - ANXIETY [None]
  - CHEST DISCOMFORT [None]
  - MENTAL DISORDER [None]
